FAERS Safety Report 7523288-7 (Version None)
Quarter: 2011Q2

REPORT INFORMATION
  Report Type: 
  Country: None (occurrence: None)
  Receive Date: 20110603
  Receipt Date: 20110518
  Transmission Date: 20111010
  Serious: Yes (Hospitalization)
  Sender: FDA-Public Use
  Company Number: A0893270A

PATIENT
  Sex: Female
  Weight: 60.9 kg

DRUGS (6)
  1. NOVOLOG [Concomitant]
  2. ZOCOR [Concomitant]
  3. LISINOPRIL [Concomitant]
  4. CLARITIN [Concomitant]
  5. AVANDIA [Suspect]
     Indication: DIABETES MELLITUS
     Dosage: 8MG PER DAY
     Route: 048
     Dates: end: 20030101
  6. LANTUS [Concomitant]

REACTIONS (3)
  - MYOCARDIAL INFARCTION [None]
  - ATRIAL FIBRILLATION [None]
  - CORONARY ARTERY DISEASE [None]
